FAERS Safety Report 9671697 (Version 1)
Quarter: 2013Q4

REPORT INFORMATION
  Report Type: Spontaneous
  Country: JP (occurrence: JP)
  Receive Date: 20131106
  Receipt Date: 20131106
  Transmission Date: 20140711
  Serious: No
  Sender: FDA-Public Use
  Company Number: JP-UCBSA-102163

PATIENT
  Age: 4 Year
  Sex: Male

DRUGS (3)
  1. E KEPPRA [Suspect]
     Indication: MYOCLONIC EPILEPSY
     Route: 048
  2. E KEPPRA [Suspect]
     Indication: MYOCLONIC EPILEPSY
     Dosage: UNSPECIFIED DOSE INCREASED
     Route: 048
  3. POTASSIUM BROMIDE [Concomitant]

REACTIONS (4)
  - Hyperkinesia [Recovered/Resolved]
  - Impulsive behaviour [Recovered/Resolved]
  - Aggression [Recovered/Resolved]
  - Convulsion [Recovering/Resolving]
